FAERS Safety Report 16148749 (Version 1)
Quarter: 2019Q2

REPORT INFORMATION
  Report Type: Report from Study
  Country: US (occurrence: US)
  Receive Date: 20190402
  Receipt Date: 20190402
  Transmission Date: 20190711
  Serious: Yes (Other)
  Sender: FDA-Public Use
  Company Number: PHEH2019US014084

PATIENT

DRUGS (1)
  1. ENTRESTO [Suspect]
     Active Substance: SACUBITRIL\VALSARTAN
     Indication: PRODUCT USED FOR UNKNOWN INDICATION
     Route: 065

REACTIONS (8)
  - Loss of consciousness [Unknown]
  - Paraesthesia [Unknown]
  - Urine output decreased [Unknown]
  - Heart rate decreased [Unknown]
  - Fatigue [Unknown]
  - Dizziness [Unknown]
  - Muscular weakness [Unknown]
  - Dysuria [Unknown]
